FAERS Safety Report 19924278 (Version 2)
Quarter: 2021Q4

REPORT INFORMATION
  Report Type: Report from Study
  Country: GR (occurrence: GR)
  Receive Date: 20211006
  Receipt Date: 20211011
  Transmission Date: 20220303
  Serious: Yes (Other)
  Sender: FDA-Public Use
  Company Number: GR-002147023-NVSC2021GR209602

PATIENT
  Age: 58 Year
  Sex: Male

DRUGS (24)
  1. BORTEZOMIB [Suspect]
     Active Substance: BORTEZOMIB
     Indication: Plasma cell myeloma
     Dosage: UNK
     Route: 042
     Dates: start: 20180126, end: 20180206
  2. BORTEZOMIB [Suspect]
     Active Substance: BORTEZOMIB
     Dosage: UNK
     Route: 042
     Dates: start: 20180216, end: 20180226
  3. BORTEZOMIB [Suspect]
     Active Substance: BORTEZOMIB
     Dosage: UNK
     Route: 042
     Dates: start: 20180309, end: 20180319
  4. BORTEZOMIB [Suspect]
     Active Substance: BORTEZOMIB
     Dosage: UNK
     Route: 042
     Dates: start: 20180330, end: 20180410
  5. BORTEZOMIB [Suspect]
     Active Substance: BORTEZOMIB
     Dosage: UNK
     Route: 042
     Dates: start: 20180423, end: 20180504
  6. BORTEZOMIB [Suspect]
     Active Substance: BORTEZOMIB
     Dosage: UNK
     Route: 042
     Dates: start: 20210518
  7. DEXAMETHASONE [Suspect]
     Active Substance: DEXAMETHASONE
     Indication: Plasma cell myeloma
     Dosage: UNK
     Route: 048
     Dates: start: 20180126, end: 20180206
  8. DEXAMETHASONE [Suspect]
     Active Substance: DEXAMETHASONE
     Dosage: UNK
     Route: 048
     Dates: start: 20180216, end: 20180227
  9. DEXAMETHASONE [Suspect]
     Active Substance: DEXAMETHASONE
     Dosage: UNK
     Route: 048
     Dates: start: 20180309, end: 20180320
  10. DEXAMETHASONE [Suspect]
     Active Substance: DEXAMETHASONE
     Dosage: UNK
     Route: 048
     Dates: start: 20180330, end: 20180411
  11. DEXAMETHASONE [Suspect]
     Active Substance: DEXAMETHASONE
     Dosage: UNK
     Route: 048
     Dates: start: 20180423, end: 20180504
  12. DEXAMETHASONE [Suspect]
     Active Substance: DEXAMETHASONE
     Dosage: UNK
     Route: 048
     Dates: start: 20180518
  13. FARYDAK [Suspect]
     Active Substance: PANOBINOSTAT
     Indication: Plasma cell myeloma
     Dosage: UNK
     Route: 048
     Dates: start: 20180126, end: 20180206
  14. FARYDAK [Suspect]
     Active Substance: PANOBINOSTAT
     Dosage: UNK
     Route: 048
     Dates: start: 20180216, end: 20180227
  15. FARYDAK [Suspect]
     Active Substance: PANOBINOSTAT
     Dosage: UNK
     Route: 048
     Dates: start: 20180309, end: 20180320
  16. FARYDAK [Suspect]
     Active Substance: PANOBINOSTAT
     Dosage: UNK
     Route: 048
     Dates: start: 20180330, end: 20180411
  17. FARYDAK [Suspect]
     Active Substance: PANOBINOSTAT
     Dosage: UNK
     Route: 048
     Dates: start: 20180423, end: 20180504
  18. FARYDAK [Suspect]
     Active Substance: PANOBINOSTAT
     Dosage: UNK
     Route: 048
     Dates: start: 20180518
  19. VALTREX [Concomitant]
     Active Substance: VALACYCLOVIR HYDROCHLORIDE
     Indication: Prophylaxis
     Dosage: UNK
     Route: 065
     Dates: start: 20070203
  20. SULFAMETHOXAZOLE\TRIMETHOPRIM [Concomitant]
     Active Substance: SULFAMETHOXAZOLE\TRIMETHOPRIM
     Indication: Prophylaxis
     Dosage: UNK
     Route: 065
     Dates: start: 20070203
  21. Penrazol [Concomitant]
     Indication: Gastrooesophageal reflux prophylaxis
     Dosage: UNK
     Route: 065
     Dates: start: 20070203
  22. LEVOFLOXACIN [Concomitant]
     Active Substance: LEVOFLOXACIN
     Indication: Prophylaxis
     Dosage: UNK
     Route: 065
     Dates: start: 20180126
  23. ACETAMINOPHEN\CODEINE PHOSPHATE [Concomitant]
     Active Substance: ACETAMINOPHEN\CODEINE PHOSPHATE
     Indication: Bone pain
     Dosage: UNK
     Route: 065
     Dates: start: 20171114
  24. ASPIRIN [Concomitant]
     Active Substance: ASPIRIN
     Indication: Thrombosis prophylaxis
     Dosage: UNK
     Route: 065
     Dates: start: 20120620

REACTIONS (11)
  - Respiratory tract infection [Recovered/Resolved]
  - Thrombocytopenia [Not Recovered/Not Resolved]
  - Neutropenia [Recovered/Resolved]
  - Hypokalaemia [Recovered/Resolved]
  - Pyrexia [Recovered/Resolved]
  - Blood creatinine increased [Not Recovered/Not Resolved]
  - Rhinorrhoea [Recovered/Resolved]
  - Anaemia [Recovered/Resolved]
  - Fatigue [Recovered/Resolved]
  - Product use issue [Unknown]
  - Off label use [Unknown]

NARRATIVE: CASE EVENT DATE: 20180126
